FAERS Safety Report 21671470 (Version 6)
Quarter: 2023Q1

REPORT INFORMATION
  Report Type: Spontaneous
  Country: JP (occurrence: JP)
  Receive Date: 20221202
  Receipt Date: 20230205
  Transmission Date: 20230418
  Serious: Yes (Hospitalization, Other)
  Sender: FDA-Public Use
  Company Number: JP-002147023-NVSJ2022JP101853

PATIENT
  Age: 72 Year
  Sex: Female
  Weight: 57 kg

DRUGS (10)
  1. GLIVEC [Suspect]
     Active Substance: IMATINIB MESYLATE
     Indication: Gastrointestinal stromal tumour
     Dosage: 400 MG
     Route: 048
     Dates: start: 20211021, end: 20211107
  2. GLIVEC [Suspect]
     Active Substance: IMATINIB MESYLATE
     Indication: Metastases to liver
     Dosage: 200 MG
     Route: 048
     Dates: start: 20211117, end: 20211208
  3. GLIVEC [Suspect]
     Active Substance: IMATINIB MESYLATE
     Dosage: 100 MG
     Route: 048
     Dates: start: 20220105, end: 20220116
  4. GLIVEC [Suspect]
     Active Substance: IMATINIB MESYLATE
     Dosage: 100 MG
     Route: 048
     Dates: start: 20220401
  5. NAPROXEN SODIUM [Concomitant]
     Active Substance: NAPROXEN SODIUM
     Indication: Pyrexia
     Dosage: 3 DOSAGE FORM
     Route: 048
     Dates: start: 20211020
  6. MAGNESIUM OXIDE [Concomitant]
     Active Substance: MAGNESIUM OXIDE
     Indication: Faecal management
     Dosage: 6 DOSAGE FORM
     Route: 048
     Dates: start: 20211018
  7. NEXIUM [Concomitant]
     Active Substance: ESOMEPRAZOLE MAGNESIUM
     Indication: Abdominal discomfort
     Dosage: 1 DOSAGE FORM
     Route: 048
     Dates: start: 20211020
  8. CANDESARTAN [Concomitant]
     Active Substance: CANDESARTAN
     Indication: Blood pressure management
     Dosage: 1 DOSAGE FORM
     Route: 048
  9. PITAVASTATIN CALCIUM [Concomitant]
     Active Substance: PITAVASTATIN CALCIUM
     Indication: Hyperlipidaemia
     Dosage: 1 DOSAGE FORM
     Route: 048
  10. URSO [Concomitant]
     Active Substance: URSODIOL
     Indication: Hepatic function abnormal
     Dosage: 3 DOSAGE FORM
     Route: 048
     Dates: start: 20211026

REACTIONS (23)
  - Peritonitis [Recovering/Resolving]
  - Diarrhoea [Unknown]
  - Abdominal pain [Unknown]
  - Melaena [Recovered/Resolved]
  - Peritoneal abscess [Recovered/Resolved]
  - Liver carcinoma ruptured [Recovering/Resolving]
  - Tumour lysis syndrome [Recovering/Resolving]
  - Renal disorder [Recovering/Resolving]
  - Septic shock [Recovering/Resolving]
  - Pyrexia [Unknown]
  - Decreased appetite [Unknown]
  - Small intestinal haemorrhage [Recovered/Resolved]
  - Waist circumference increased [Unknown]
  - Vascular compression [Unknown]
  - Abdominal compartment syndrome [Unknown]
  - Pneumothorax [Unknown]
  - Ascites [Unknown]
  - Blood creatinine increased [Unknown]
  - Cholelithiasis [Unknown]
  - Renal cyst [Unknown]
  - Pleural effusion [Unknown]
  - Uterine leiomyoma [Unknown]
  - Therapeutic response decreased [Unknown]

NARRATIVE: CASE EVENT DATE: 20211107
